FAERS Safety Report 4704752-2 (Version None)
Quarter: 2005Q2

REPORT INFORMATION
  Report Type: 
  Country: None (occurrence: None)
  Receive Date: 20050630
  Receipt Date: 20050608
  Transmission Date: 20051028
  Serious: Yes (Hospitalization)
  Sender: FDA-Public Use
  Company Number: FACT0500453

PATIENT
  Age: 33 Year
  Sex: Male

DRUGS (7)
  1. FACTIVE (GEMFLOXACIN MESYLATE) TABLET, 320MG [Suspect]
     Indication: RESPIRATORY TRACT INFECTION BACTERIAL
     Dosage: 320 MG, ORAL
     Route: 048
  2. TYLENOL [Suspect]
     Indication: PYREXIA
     Dosage: 4 G, QD, ORAL
     Route: 048
  3. LEVAQUIN [Suspect]
     Indication: SINUSITIS
     Dates: start: 20050606, end: 20050608
  4. DOXYCYLCINE (DOXYCYCLINE) [Suspect]
     Dates: start: 20050608
  5. IMODIUM [Concomitant]
  6. TUMS (CALCIUM CARBONATE) [Concomitant]
  7. ZYRTEC [Concomitant]

REACTIONS (23)
  - ANAEMIA [None]
  - ANION GAP INCREASED [None]
  - BLOOD PRESSURE SYSTOLIC INCREASED [None]
  - CRACKLES LUNG [None]
  - DERMATITIS [None]
  - DIARRHOEA [None]
  - DRUG TOXICITY [None]
  - HAEMODIALYSIS [None]
  - HEPATIC FAILURE [None]
  - HEPATITIS [None]
  - HYPERHIDROSIS [None]
  - LEPTOSPIROSIS [None]
  - LYMPHOMA [None]
  - PANCREATITIS [None]
  - PYREXIA [None]
  - RASH GENERALISED [None]
  - RENAL FAILURE [None]
  - RHABDOMYOLYSIS [None]
  - SERUM FERRITIN INCREASED [None]
  - SINUSITIS [None]
  - SPLENOMEGALY [None]
  - TACHYPNOEA [None]
  - THROMBOCYTOPENIA [None]
